FAERS Safety Report 15074963 (Version 2)
Quarter: 2023Q4

REPORT INFORMATION
  Report Type: Report from Study
  Country: US (occurrence: US)
  Receive Date: 20180627
  Receipt Date: 20231128
  Transmission Date: 20240109
  Serious: No
  Sender: FDA-Public Use
  Company Number: US-SAOL THERAPEUTICS-2017SAO01628

PATIENT
  Age: 62 Year
  Sex: Female

DRUGS (13)
  1. BACLOFEN [Suspect]
     Active Substance: BACLOFEN
     Dosage: 450.11 ?G, \DAY
     Route: 037
     Dates: start: 20160128, end: 20160310
  2. BACLOFEN [Suspect]
     Active Substance: BACLOFEN
     Dosage: 541.13 ?G, \DAY MAX
     Route: 037
     Dates: start: 20160128, end: 20160310
  3. DILAUDID [Suspect]
     Active Substance: HYDROMORPHONE HYDROCHLORIDE
     Dosage: 4.501 MG, \DAY
     Route: 037
     Dates: start: 20160128, end: 20160310
  4. DILAUDID [Suspect]
     Active Substance: HYDROMORPHONE HYDROCHLORIDE
     Dosage: 5.411 MG, \DAY MAX
     Route: 037
     Dates: start: 20160128, end: 20160310
  5. BUPIVACAINE [Suspect]
     Active Substance: BUPIVACAINE
     Dosage: 22.505 MG, \DAY
     Route: 037
     Dates: start: 20160128, end: 20160310
  6. BUPIVACAINE [Suspect]
     Active Substance: BUPIVACAINE
     Dosage: 27.057 MG, \DAY MAX
     Route: 037
     Dates: start: 20160128, end: 20160310
  7. BUPIVACAINE [Suspect]
     Active Substance: BUPIVACAINE
     Dosage: 15.004 MG, \DAY
     Route: 037
     Dates: start: 20160310
  8. CLONIDINE [Suspect]
     Active Substance: CLONIDINE
     Dosage: 112.53 ?G, \DAY
     Route: 037
     Dates: start: 20160128, end: 20160310
  9. CLONIDINE [Suspect]
     Active Substance: CLONIDINE
     Dosage: 135.28 ?G, \DAY MAX
     Route: 037
     Dates: start: 20160128, end: 20160310
  10. BACLOFEN [Suspect]
     Active Substance: BACLOFEN
     Dosage: 400.10 ?G, \DAY
     Route: 037
     Dates: start: 20160310
  11. FENTANYL [Suspect]
     Active Substance: FENTANYL\FENTANYL CITRATE
     Dosage: 100.02 ?G, \DAY
     Route: 037
     Dates: start: 20160310
  12. FENTANYL [Suspect]
     Active Substance: FENTANYL\FENTANYL CITRATE
     Dosage: 130.92 ?G, \DAY
     Route: 037
     Dates: start: 20160310
  13. CLONIDINE [Suspect]
     Active Substance: CLONIDINE
     Dosage: 125.03 ?G, \DAY
     Route: 037
     Dates: start: 20160310

REACTIONS (2)
  - Vision blurred [Recovered/Resolved]
  - Headache [Recovered/Resolved]

NARRATIVE: CASE EVENT DATE: 20160310
